FAERS Safety Report 10681001 (Version 3)
Quarter: 2015Q1

REPORT INFORMATION
  Report Type: Spontaneous
  Country: US (occurrence: US)
  Receive Date: 20141229
  Receipt Date: 20150128
  Transmission Date: 20150720
  Serious: Yes (Death, Life-Threatening, Hospitalization, Disabling, Other)
  Sender: FDA-Public Use
  Company Number: US-009507513-1412USA010947

PATIENT
  Age: 65 Year
  Sex: Male
  Weight: 68.27 kg

DRUGS (2)
  1. NOXAFIL [Suspect]
     Active Substance: POSACONAZOLE
     Indication: FUNGAL INFECTION
     Dosage: 400 MG, QD
     Route: 048
     Dates: start: 20140911, end: 201412
  2. NOXAFIL [Suspect]
     Active Substance: POSACONAZOLE
     Indication: FUNGAL INFECTION
     Dosage: 400 MG, QD
     Route: 048
     Dates: start: 201412

REACTIONS (2)
  - Renal failure [Fatal]
  - Hepatic failure [Fatal]

NARRATIVE: CASE EVENT DATE: 2014
